FAERS Safety Report 8777246 (Version 1)
Quarter: 2012Q4

REPORT INFORMATION
  Report Type: 
  Country: US (occurrence: US)
  Receive Date: 20120911
  Receipt Date: 20120911
  Transmission Date: 20130627
  Serious: Yes (Death, Other)
  Sender: FDA-Public Use
  Company Number: US-ELI_LILLY_AND_COMPANY-US201209001344

PATIENT
  Sex: Female

DRUGS (1)
  1. BYETTA [Suspect]
     Indication: TYPE 2 DIABETES MELLITUS
     Dosage: UNK
     Dates: start: 2006

REACTIONS (7)
  - Renal failure acute [Fatal]
  - Calciphylaxis [Fatal]
  - Aortic valve stenosis [Fatal]
  - Dyspnoea [Unknown]
  - Weight increased [Unknown]
  - Abdominal pain [Unknown]
  - Nausea [Unknown]
